FAERS Safety Report 6916545-6 (Version None)
Quarter: 2010Q3

REPORT INFORMATION
  Report Type: 
  Country: None (occurrence: None)
  Receive Date: 20100810
  Receipt Date: 20100730
  Transmission Date: 20110219
  Serious: Yes (Hospitalization)
  Sender: FDA-Public Use
  Company Number: US-AMGEN-QUU428256

PATIENT
  Sex: Male

DRUGS (1)
  1. ENBREL [Suspect]
     Indication: PSORIATIC ARTHROPATHY
     Route: 058
     Dates: start: 20050401

REACTIONS (4)
  - ARRHYTHMIA [None]
  - CAROTID ARTERY STENOSIS [None]
  - HYPOTENSION [None]
  - PSORIATIC ARTHROPATHY [None]
